FAERS Safety Report 4280447-7 (Version None)
Quarter: 2004Q1

REPORT INFORMATION
  Report Type: 
  Country: None (occurrence: None)
  Receive Date: 20040127
  Receipt Date: 20040116
  Transmission Date: 20041129
  Serious: Yes (Hospitalization)
  Sender: FDA-Public Use
  Company Number: 04P-056-0247384-00

PATIENT
  Age: 64 Year
  Sex: Female

DRUGS (6)
  1. ISOPTINE (ISOPTIN) (VERAPAMIL) [Suspect]
     Dosage: PER ORAL
     Route: 048
     Dates: start: 20030101, end: 20030705
  2. NICERGOLINE [Suspect]
     Dosage: 30 MG, PER ORAL
     Route: 048
     Dates: start: 20030101, end: 20030726
  3. SPIRONOLACTONE [Suspect]
     Dosage: PER ORAL
     Route: 048
     Dates: start: 20030101, end: 20030705
  4. ALLOPURINOL [Suspect]
     Dosage: 300 MG, PER ORAL
     Route: 048
     Dates: start: 20030617, end: 20030705
  5. PRAVASTATIN [Suspect]
     Dosage: 20 MG, PER ORAL
     Route: 048
     Dates: start: 20030101, end: 20030705
  6. ASASANTINE [Suspect]
     Dates: start: 20030101, end: 20030705

REACTIONS (1)
  - HYPERSENSITIVITY [None]
